FAERS Safety Report 9364383 (Version 1)
Quarter: 2013Q2

REPORT INFORMATION
  Report Type: Spontaneous
  Country: US (occurrence: None)
  Receive Date: 20130619
  Receipt Date: 20130619
  Transmission Date: 20140414
  Serious: Yes (Hospitalization)
  Sender: FDA-Public Use
  Company Number: 2013AP006053

PATIENT
  Age: 71 Year
  Sex: Female

DRUGS (1)
  1. CARBIDOPA \ LEVODOPA [Suspect]
     Indication: PARKINSON^S DISEASE

REACTIONS (3)
  - Herpes simplex encephalitis [None]
  - Muscle rigidity [None]
  - Paralysis [None]
